FAERS Safety Report 7757360 (Version 4)
Quarter: 2014Q3

REPORT INFORMATION
  Report Type: Spontaneous
  Country: US (occurrence: None)
  Receive Date: 20101216
  Receipt Date: 20140819
  Transmission Date: 20150326
  Serious: Yes (Hospitalization, Other)
  Sender: FDA-Public Use
  Company Number: OTH-SPN-2010007

PATIENT
  Age: 5 Month
  Sex: Male
  Weight: 7.5 kg

DRUGS (6)
  1. BUPHENYL [Concomitant]
     Active Substance: SODIUM PHENYLBUTYRATE
  2. CARBAGLU [Suspect]
     Active Substance: CARGLUMIC ACID
     Indication: ACIDOSIS
     Dosage: 1 EVERY DAY
     Route: 048
     Dates: start: 20101119, end: 20101130
  3. CARGLUMIC ACID [Concomitant]
     Active Substance: CARGLUMIC ACID
  4. ENFAMIL [Concomitant]
     Active Substance: AMINO ACIDS\CARBOHYDRATES\MINERALS\VITAMINS
  5. PRO-PHREE [Concomitant]
  6. PROPIMEX [Concomitant]

REACTIONS (7)
  - Lethargy [None]
  - Ammonia increased [None]
  - Bronchiolitis [None]
  - Anaemia [None]
  - Metabolic acidosis [None]
  - Microcytic anaemia [None]
  - Off label use [None]

NARRATIVE: CASE EVENT DATE: 20101129
